FAERS Safety Report 16900428 (Version 1)
Quarter: 2019Q4

REPORT INFORMATION
  Report Type: Spontaneous
  Country: US (occurrence: US)
  Receive Date: 20190815
  Receipt Date: 20190815
  Transmission Date: 20200122
  Serious: No
  Sender: FDA-Public Use
  Company Number: None

PATIENT
  Age: 67 Year
  Sex: Male
  Weight: 94.35 kg

DRUGS (5)
  1. B-12 VITAMIN [Concomitant]
  2. ASPIRIN. [Concomitant]
     Active Substance: ASPIRIN
  3. IRBESARTAN. [Concomitant]
     Active Substance: IRBESARTAN
  4. SMZ/TMP DS [Suspect]
     Active Substance: SULFAMETHOXAZOLE\TRIMETHOPRIM
     Indication: URINARY TRACT INFECTION
     Route: 048
     Dates: start: 20190429, end: 20190504
  5. HCTZ [Concomitant]
     Active Substance: HYDROCHLOROTHIAZIDE

REACTIONS (10)
  - Nightmare [None]
  - Myalgia [None]
  - Neck pain [None]
  - Chest discomfort [None]
  - Pain in extremity [None]
  - Arthropathy [None]
  - Back pain [None]
  - Muscular weakness [None]
  - Musculoskeletal pain [None]
  - Arthralgia [None]

NARRATIVE: CASE EVENT DATE: 20190430
